FAERS Safety Report 6975193-2 (Version None)
Quarter: 2010Q3

REPORT INFORMATION
  Report Type: 
  Country: None (occurrence: None)
  Receive Date: 20100910
  Receipt Date: 20090220
  Transmission Date: 20110219
  Serious: No
  Sender: FDA-Public Use
  Company Number: US-WYE-H08303709

PATIENT
  Sex: Male

DRUGS (5)
  1. PRISTIQ [Suspect]
     Indication: DEPRESSION
     Route: 048
     Dates: start: 20080501
  2. XANAX [Concomitant]
  3. CENTRUM SILVER [Concomitant]
  4. PACERONE [Concomitant]
  5. VYTORIN [Concomitant]

REACTIONS (1)
  - MACULAR DEGENERATION [None]
